FAERS Safety Report 5616349-0 (Version None)
Quarter: 2008Q1

REPORT INFORMATION
  Report Type: 
  Country: None (occurrence: None)
  Receive Date: 20080205
  Receipt Date: 20080205
  Transmission Date: 20080703
  Serious: No
  Sender: FDA-Public Use
  Company Number: None

PATIENT
  Age: 45 Year
  Sex: Male
  Weight: 113.3993 kg

DRUGS (3)
  1. BUPROPION 150 [Suspect]
     Indication: DYSTHYMIC DISORDER
     Dosage: 150MG QD PO
     Route: 048
     Dates: start: 20050101
  2. BUPROPION 150 [Suspect]
     Indication: DYSTHYMIC DISORDER
     Dosage: 150MG QD PO
     Route: 048
     Dates: start: 20060101
  3. BUPROPION 150 [Suspect]
     Indication: DYSTHYMIC DISORDER
     Dosage: 150MG QD PO
     Route: 048
     Dates: start: 20070101

REACTIONS (1)
  - DRUG INEFFECTIVE [None]
